FAERS Safety Report 22114540 (Version 1)
Quarter: 2023Q1

REPORT INFORMATION
  Report Type: Spontaneous
  Country: US (occurrence: US)
  Receive Date: 20230320
  Receipt Date: 20230320
  Transmission Date: 20230418
  Serious: Yes (Other)
  Sender: FDA-Public Use
  Company Number: US-INSMED, INC.-2023-00946-US

PATIENT
  Age: 68 Year
  Sex: Male

DRUGS (1)
  1. AMIKACIN SULFATE [Suspect]
     Active Substance: AMIKACIN SULFATE
     Indication: Mycobacterium avium complex infection
     Dosage: UNK, QD
     Route: 065

REACTIONS (5)
  - Mycobacterium avium complex infection [Unknown]
  - Night sweats [Unknown]
  - Weight decreased [Unknown]
  - Fatigue [Unknown]
  - Drug ineffective [Unknown]
